FAERS Safety Report 21821439 (Version 1)
Quarter: 2023Q1

REPORT INFORMATION
  Report Type: Spontaneous
  Country: US (occurrence: US)
  Receive Date: 20230105
  Receipt Date: 20230105
  Transmission Date: 20230418
  Serious: No
  Sender: FDA-Public Use
  Company Number: US-PADAGIS-2022PAD01234

PATIENT

DRUGS (5)
  1. IMIQUIMOD [Suspect]
     Active Substance: IMIQUIMOD
     Indication: Focal epithelial hyperplasia
     Dosage: THREE TIMES WEEKLY
     Route: 061
  2. CANTHARIDIN [Suspect]
     Active Substance: CANTHARIDIN
     Indication: Focal epithelial hyperplasia
     Dosage: UNK, (TWO APPLICATIONS)
     Route: 065
  3. CANDIDA ALBICANS [Suspect]
     Active Substance: CANDIDA ALBICANS
     Indication: Focal epithelial hyperplasia
     Dosage: UNK
     Route: 026
  4. CIMETIDINE [Suspect]
     Active Substance: CIMETIDINE
     Indication: Focal epithelial hyperplasia
     Dosage: 800 MG, BID
     Route: 065
  5. TRETINOIN [Suspect]
     Active Substance: TRETINOIN
     Indication: Focal epithelial hyperplasia
     Dosage: DAILY
     Route: 065

REACTIONS (2)
  - Treatment failure [Unknown]
  - Product use in unapproved indication [Unknown]
